FAERS Safety Report 11855216 (Version 1)
Quarter: 2015Q4

REPORT INFORMATION
  Report Type: Spontaneous
  Country: US (occurrence: US)
  Receive Date: 20151221
  Receipt Date: 20151221
  Transmission Date: 20160305
  Serious: No
  Sender: FDA-Public Use
  Company Number: US-TEVA-537363USA

PATIENT
  Age: 59 Year
  Sex: Female
  Weight: 67.19 kg

DRUGS (1)
  1. METRONIDAZOLE. [Suspect]
     Active Substance: METRONIDAZOLE
     Indication: INFECTION
     Route: 065

REACTIONS (2)
  - Dysgeusia [Unknown]
  - Dysphagia [Unknown]
